FAERS Safety Report 10194766 (Version 5)
Quarter: 2017Q3

REPORT INFORMATION
  Report Type: Spontaneous
  Country: US (occurrence: US)
  Receive Date: 20140526
  Receipt Date: 20170913
  Transmission Date: 20171127
  Serious: Yes (Life-Threatening, Hospitalization, Disabling, Other)
  Sender: FDA-Public Use
  Company Number: US-009507513-1405USA010278

PATIENT
  Sex: Female
  Weight: 65.76 kg

DRUGS (4)
  1. NUVARING [Suspect]
     Active Substance: ETHINYL ESTRADIOL\ETONOGESTREL
     Indication: CONTRACEPTION
     Dosage: 1 DF, QM
     Route: 067
     Dates: start: 201203, end: 201404
  2. NUVARING [Suspect]
     Active Substance: ETHINYL ESTRADIOL\ETONOGESTREL
     Dosage: 1 DF, QM
     Route: 067
     Dates: start: 2012, end: 20120222
  3. NUVARING [Suspect]
     Active Substance: ETHINYL ESTRADIOL\ETONOGESTREL
     Indication: MENSTRUAL CYCLE MANAGEMENT
     Dosage: 1 DF, QM
     Route: 067
     Dates: start: 2006, end: 2010
  4. TRICOR [Concomitant]
     Active Substance: FENOFIBRATE
     Indication: PRODUCT USED FOR UNKNOWN INDICATION
     Dosage: 48 MG, QD
     Route: 048

REACTIONS (17)
  - Maternal exposure before pregnancy [Recovered/Resolved]
  - Ovarian cyst [Unknown]
  - Polycystic ovaries [Unknown]
  - Breast feeding [Recovered/Resolved]
  - Pneumonia [Unknown]
  - Pulmonary embolism [Recovered/Resolved]
  - Thyroid disorder [Unknown]
  - Dysfunctional uterine bleeding [Unknown]
  - Cholelithiasis [Unknown]
  - Respiratory tract infection [Recovered/Resolved]
  - Irritable bowel syndrome [Unknown]
  - Shoulder operation [Unknown]
  - Product use in unapproved indication [Recovered/Resolved]
  - Gallbladder disorder [Unknown]
  - Scoliosis [Unknown]
  - Hyperlipidaemia [Unknown]
  - Leukocytosis [Recovered/Resolved]

NARRATIVE: CASE EVENT DATE: 2006
